FAERS Safety Report 7206882-2 (Version None)
Quarter: 2010Q4

REPORT INFORMATION
  Report Type: 
  Country: None (occurrence: None)
  Receive Date: 20101230
  Receipt Date: 20101230
  Transmission Date: 20110411
  Serious: Yes (Hospitalization)
  Sender: FDA-Public Use
  Company Number: None

PATIENT
  Sex: Female
  Weight: 94.3482 kg

DRUGS (4)
  1. YAZ [Suspect]
     Indication: CONTRACEPTION
     Dosage: 1 PILL ONCE A DAY ORALLY
     Route: 048
  2. YAZ [Suspect]
     Indication: PREMENSTRUAL SYNDROME
     Dosage: 1 PILL ONCE A DAY ORALLY
     Route: 048
  3. YAZ [Suspect]
     Indication: WEIGHT CONTROL
     Dosage: 1 PILL ONCE A DAY ORALLY
     Route: 048
  4. LEVOTHYROXINE SODIUM [Concomitant]

REACTIONS (1)
  - CHOLELITHIASIS [None]
